FAERS Safety Report 24808703 (Version 1)
Quarter: 2025Q1

REPORT INFORMATION
  Report Type: Spontaneous
  Country: US (occurrence: US)
  Receive Date: 20250106
  Receipt Date: 20250106
  Transmission Date: 20250409
  Serious: Yes (Other)
  Sender: AMGEN
  Company Number: US-AMGEN-USASP2024256895

PATIENT
  Age: 29 Year
  Sex: Female

DRUGS (2)
  1. INFLIXIMAB [Suspect]
     Active Substance: INFLIXIMAB
     Indication: Colitis ulcerative
     Route: 065
  2. USTEKINUMAB [Suspect]
     Active Substance: USTEKINUMAB
     Indication: Psoriasis
     Route: 065

REACTIONS (5)
  - Pericarditis [Recovered/Resolved]
  - Psoriasis [Unknown]
  - C-reactive protein increased [Unknown]
  - Leukocytosis [Unknown]
  - Fibrin D dimer increased [Unknown]
